FAERS Safety Report 22135088 (Version 9)
Quarter: 2023Q4

REPORT INFORMATION
  Report Type: Spontaneous
  Country: JP (occurrence: JP)
  Receive Date: 20230324
  Receipt Date: 20231213
  Transmission Date: 20240110
  Serious: Yes (Hospitalization, Other)
  Sender: FDA-Public Use
  Company Number: JP-UNITED THERAPEUTICS-UNT-2023-004871

PATIENT
  Age: 5 Year
  Sex: Male
  Weight: 14.6 kg

DRUGS (50)
  1. UNITUXIN [Suspect]
     Active Substance: DINUTUXIMAB
     Indication: Neuroblastoma recurrent
     Dosage: UNK, CYCLICAL (CYCLE 1)
     Route: 041
     Dates: start: 20220926, end: 20220929
  2. UNITUXIN [Suspect]
     Active Substance: DINUTUXIMAB
     Dosage: UNK, CYCLICAL (CYCLE 2)
     Route: 041
     Dates: start: 20221101, end: 20221104
  3. UNITUXIN [Suspect]
     Active Substance: DINUTUXIMAB
     Dosage: UNK, CYCLICAL (CYCLE 3)
     Route: 041
     Dates: start: 20221205, end: 20221208
  4. UNITUXIN [Suspect]
     Active Substance: DINUTUXIMAB
     Dosage: UNK, CYCLICAL (CYCLE 4)
     Route: 041
     Dates: start: 20230124, end: 20230127
  5. UNITUXIN [Suspect]
     Active Substance: DINUTUXIMAB
     Dosage: 17.5 MG/M2, CYCLICAL (CYCLE 5)
     Route: 041
     Dates: start: 20230227, end: 20230302
  6. UNITUXIN [Suspect]
     Active Substance: DINUTUXIMAB
     Dosage: 17.5 MG/M2, CYCLICAL (CYCLE 6)
     Route: 041
     Dates: start: 20230516, end: 20230518
  7. UNITUXIN [Suspect]
     Active Substance: DINUTUXIMAB
     Dosage: 8.5 MG/M2, CYCLICAL (CYCLE 6)
     Route: 041
     Dates: start: 20230519, end: 20230519
  8. FILGRASTIM [Suspect]
     Active Substance: FILGRASTIM
     Indication: Neuroblastoma recurrent
     Dosage: UNK, CYCLICAL (CYCLE 1)
     Route: 065
     Dates: start: 20220923, end: 20221006
  9. FILGRASTIM [Suspect]
     Active Substance: FILGRASTIM
     Dosage: UNK, CYCLICAL (CYCLE 3)
     Route: 065
     Dates: start: 20221202, end: 20221215
  10. FILGRASTIM [Suspect]
     Active Substance: FILGRASTIM
     Dosage: 5 ?G/KG/DAY, CYCLICAL (CYCLE 5)
     Route: 065
     Dates: start: 20230224, end: 20230305
  11. FILGRASTIM [Suspect]
     Active Substance: FILGRASTIM
     Dosage: 2 ?G/KG/DAY, CYCLICAL (CYCLE 5)
     Route: 065
     Dates: start: 20230308, end: 20230309
  12. TECELEUKIN [Suspect]
     Active Substance: TECELEUKIN
     Indication: Neuroblastoma recurrent
     Dosage: 750,000 UNITS/M^2/DAY (CYCLE 2)
     Route: 065
     Dates: start: 20221025, end: 20221028
  13. TECELEUKIN [Suspect]
     Active Substance: TECELEUKIN
     Dosage: 1000,000 UNITS/M^2/DAY (CYCLE 2)
     Route: 065
     Dates: start: 20221101, end: 20221104
  14. TECELEUKIN [Suspect]
     Active Substance: TECELEUKIN
     Dosage: 750,000 UNITS/M^2/DAY (CYCLE 4)
     Route: 065
     Dates: start: 20230117, end: 20230120
  15. TECELEUKIN [Suspect]
     Active Substance: TECELEUKIN
     Dosage: 1000,000 UNITS/M^2/DAY (CYCLE 4)
     Route: 065
     Dates: start: 20230124, end: 20230127
  16. TECELEUKIN [Suspect]
     Active Substance: TECELEUKIN
     Dosage: 750,000 UNITS/M^2/DAY (CYCLE 6)
     Route: 065
     Dates: start: 20230417, end: 20230417
  17. TECELEUKIN [Suspect]
     Active Substance: TECELEUKIN
     Dosage: 420,000 UNITS/M^2/DAY (CYCLE 6)
     Route: 065
     Dates: start: 20230418, end: 20230418
  18. TECELEUKIN [Suspect]
     Active Substance: TECELEUKIN
     Dosage: UNK (CYCLE 6)
     Route: 065
     Dates: start: 20230509, end: 202305
  19. TECELEUKIN [Suspect]
     Active Substance: TECELEUKIN
     Dosage: 74,000 UNITS/M^2/DAY (DOSE REDUCED TO 1/10) (CYCLE 6)
     Route: 065
     Dates: start: 20230516, end: 20230518
  20. TECELEUKIN [Suspect]
     Active Substance: TECELEUKIN
     Dosage: 36,000 UNITS/M^2/DAY (CYCLE 6)
     Route: 065
     Dates: start: 20230519, end: 20230519
  21. HYDROXYZINE [Concomitant]
     Active Substance: HYDROXYZINE HYDROCHLORIDE
     Indication: Prophylaxis
     Dosage: UNK
     Route: 065
     Dates: start: 20220926, end: 20220929
  22. HYDROXYZINE [Concomitant]
     Active Substance: HYDROXYZINE HYDROCHLORIDE
     Dosage: UNK
     Route: 065
     Dates: start: 20221025, end: 20221025
  23. HYDROXYZINE [Concomitant]
     Active Substance: HYDROXYZINE HYDROCHLORIDE
     Dosage: UNK
     Route: 065
     Dates: start: 20221101, end: 20221104
  24. HYDROXYZINE [Concomitant]
     Active Substance: HYDROXYZINE HYDROCHLORIDE
     Dosage: UNK
     Route: 065
     Dates: start: 20221205, end: 20221208
  25. HYDROXYZINE [Concomitant]
     Active Substance: HYDROXYZINE HYDROCHLORIDE
     Dosage: UNK
     Route: 065
     Dates: start: 20230117, end: 20230117
  26. HYDROXYZINE [Concomitant]
     Active Substance: HYDROXYZINE HYDROCHLORIDE
     Dosage: UNK
     Route: 065
     Dates: start: 20230124, end: 20230127
  27. HYDROXYZINE [Concomitant]
     Active Substance: HYDROXYZINE HYDROCHLORIDE
     Dosage: UNK
     Route: 065
     Dates: start: 20230227, end: 20230302
  28. HYDROXYZINE [Concomitant]
     Active Substance: HYDROXYZINE HYDROCHLORIDE
     Dosage: UNK
     Route: 065
     Dates: start: 20230417, end: 20230423
  29. HYDROXYZINE [Concomitant]
     Active Substance: HYDROXYZINE HYDROCHLORIDE
     Dosage: UNK
     Route: 065
     Dates: start: 20230516, end: 20230520
  30. ACETAMINOPHEN [Concomitant]
     Active Substance: ACETAMINOPHEN
     Indication: Prophylaxis
     Dosage: UNK
     Route: 065
     Dates: start: 20220926, end: 20220929
  31. ACETAMINOPHEN [Concomitant]
     Active Substance: ACETAMINOPHEN
     Dosage: UNK
     Route: 065
     Dates: start: 20221025, end: 20221025
  32. ACETAMINOPHEN [Concomitant]
     Active Substance: ACETAMINOPHEN
     Dosage: UNK
     Route: 065
     Dates: start: 20221101, end: 20221104
  33. ACETAMINOPHEN [Concomitant]
     Active Substance: ACETAMINOPHEN
     Dosage: UNK
     Route: 065
     Dates: start: 20221205, end: 20221208
  34. ACETAMINOPHEN [Concomitant]
     Active Substance: ACETAMINOPHEN
     Dosage: UNK
     Route: 065
     Dates: start: 20230117, end: 20230117
  35. ACETAMINOPHEN [Concomitant]
     Active Substance: ACETAMINOPHEN
     Dosage: UNK
     Route: 065
     Dates: start: 20230124, end: 20230127
  36. ACETAMINOPHEN [Concomitant]
     Active Substance: ACETAMINOPHEN
     Dosage: UNK
     Route: 065
     Dates: start: 20230227, end: 20230302
  37. ACETAMINOPHEN [Concomitant]
     Active Substance: ACETAMINOPHEN
     Dosage: UNK
     Route: 065
     Dates: start: 20230417, end: 20230423
  38. ACETAMINOPHEN [Concomitant]
     Active Substance: ACETAMINOPHEN
     Dosage: UNK
     Route: 065
     Dates: start: 20230516, end: 20230520
  39. MORPHINE [Concomitant]
     Active Substance: MORPHINE
     Indication: Prophylaxis
     Dosage: UNK
     Route: 065
     Dates: start: 20220926, end: 20220929
  40. MORPHINE [Concomitant]
     Active Substance: MORPHINE
     Dosage: UNK
     Route: 065
     Dates: start: 20221101, end: 20221104
  41. MORPHINE [Concomitant]
     Active Substance: MORPHINE
     Dosage: UNK
     Route: 065
     Dates: start: 20221205, end: 20221208
  42. MORPHINE [Concomitant]
     Active Substance: MORPHINE
     Dosage: UNK
     Route: 065
     Dates: start: 20230124, end: 20230127
  43. MORPHINE [Concomitant]
     Active Substance: MORPHINE
     Dosage: UNK
     Route: 065
     Dates: start: 20230227, end: 20230302
  44. MORPHINE [Concomitant]
     Active Substance: MORPHINE
     Dosage: UNK
     Route: 065
     Dates: start: 20230516, end: 20230519
  45. Novamin [Concomitant]
     Indication: Prophylaxis
     Dosage: UNK
     Route: 065
     Dates: start: 20220926, end: 20220929
  46. Novamin [Concomitant]
     Dosage: UNK
     Route: 065
     Dates: start: 20221101, end: 20221104
  47. Novamin [Concomitant]
     Dosage: UNK
     Route: 065
     Dates: start: 20221205, end: 20221208
  48. Novamin [Concomitant]
     Dosage: UNK
     Route: 065
     Dates: start: 20230124, end: 20230127
  49. Novamin [Concomitant]
     Dosage: UNK
     Route: 065
     Dates: start: 20230227, end: 20230302
  50. Novamin [Concomitant]
     Dosage: UNK
     Route: 065
     Dates: start: 20230516, end: 20230520

REACTIONS (36)
  - Platelet count decreased [Recovered/Resolved]
  - Platelet count decreased [Recovered/Resolved]
  - Aspartate aminotransferase increased [Recovered/Resolved]
  - Hypoglycaemia [Recovered/Resolved]
  - Neutrophil count decreased [Recovered/Resolved]
  - Hypokalaemia [Recovered/Resolved]
  - Hypokalaemia [Recovered/Resolved]
  - Hypokalaemia [Recovered/Resolved]
  - Extradural haematoma [Recovered/Resolved]
  - Skull fracture [Recovered/Resolved]
  - Capillary leak syndrome [Unknown]
  - Neuroblastoma [Unknown]
  - Hypoalbuminaemia [Recovered/Resolved]
  - Hypoalbuminaemia [Recovered/Resolved]
  - Hypoalbuminaemia [Recovered/Resolved]
  - Hypomagnesaemia [Recovered/Resolved]
  - Hypomagnesaemia [Recovered/Resolved]
  - Aspartate aminotransferase increased [Recovered/Resolved]
  - Alanine aminotransferase increased [Recovered/Resolved]
  - Alanine aminotransferase increased [Recovered/Resolved]
  - Gamma-glutamyltransferase increased [Recovered/Resolved]
  - Gamma-glutamyltransferase increased [Not Recovered/Not Resolved]
  - Influenza [Unknown]
  - Pyrexia [Recovered/Resolved]
  - Pyrexia [Recovered/Resolved]
  - Pyrexia [Recovered/Resolved]
  - Pyrexia [Recovered/Resolved]
  - Pyrexia [Recovered/Resolved]
  - Neutrophil count decreased [Recovered/Resolved]
  - Neutrophil count decreased [Recovered/Resolved]
  - Blood bilirubin increased [Recovered/Resolved]
  - Blood bilirubin increased [Recovered/Resolved]
  - Hypoalbuminaemia [Recovered/Resolved]
  - Hypoalbuminaemia [Recovered/Resolved]
  - Fall [Recovered/Resolved with Sequelae]
  - Platelet count decreased [Recovered/Resolved]

NARRATIVE: CASE EVENT DATE: 20220926
